FAERS Safety Report 18433980 (Version 2)
Quarter: 2020Q4

REPORT INFORMATION
  Report Type: Spontaneous
  Country: JP (occurrence: JP)
  Receive Date: 20201028
  Receipt Date: 20201030
  Transmission Date: 20210114
  Serious: Yes (Death, Other)
  Sender: FDA-Public Use
  Company Number: JP-009507513-2007JPN001212J

PATIENT
  Age: 4 Year
  Sex: Female

DRUGS (3)
  1. TEMODAL [Suspect]
     Active Substance: TEMOZOLOMIDE
     Indication: BRAIN STEM GLIOMA
     Dosage: 75 MILLIGRAM/SQ. METER/DAY(20MG?2 TIMES), FROM DAYS 36 TO 74
     Route: 048
     Dates: start: 20151008, end: 2015
  2. BEVACIZUMAB. [Concomitant]
     Active Substance: BEVACIZUMAB
     Indication: BRAIN STEM GLIOMA
     Dosage: 10 MILLIGRAM/KILOGRAM,/DAILY
     Route: 065
  3. TEMODAL [Suspect]
     Active Substance: TEMOZOLOMIDE
     Dosage: 150 MILLIGRAM/SQ. METER/DAILY(DAY1 TO DAY5),EVERY 28 DAYS
     Route: 048
     Dates: start: 2015, end: 20160506

REACTIONS (3)
  - Off label use [Unknown]
  - Shock haemorrhagic [Recovered/Resolved]
  - Disease progression [Fatal]

NARRATIVE: CASE EVENT DATE: 2015
